FAERS Safety Report 19980341 (Version 1)
Quarter: 2021Q4

REPORT INFORMATION
  Report Type: Report from Study
  Country: None (occurrence: GR)
  Receive Date: 20211022
  Receipt Date: 20211022
  Transmission Date: 20220303
  Serious: Yes (Hospitalization)
  Sender: FDA-Public Use
  Company Number: GR-ABBVIE-21K-066-4129336-00

PATIENT

DRUGS (3)
  1. VENETOCLAX [Suspect]
     Active Substance: VENETOCLAX
     Indication: Acute myeloid leukaemia
     Route: 048
     Dates: start: 202109
  2. DECITABINE [Concomitant]
     Active Substance: DECITABINE
     Indication: Acute myeloid leukaemia
     Dates: start: 202109
  3. FLUCONAZOLE [Concomitant]
     Active Substance: FLUCONAZOLE
     Indication: Antifungal treatment

REACTIONS (1)
  - Transfusion [Unknown]

NARRATIVE: CASE EVENT DATE: 20210101
